FAERS Safety Report 10861333 (Version 1)
Quarter: 2015Q1

REPORT INFORMATION
  Report Type: Report from Study
  Country: HU (occurrence: HU)
  Receive Date: 20150224
  Receipt Date: 20150224
  Transmission Date: 20150721
  Serious: Yes (Death, Hospitalization)
  Sender: FDA-Public Use
  Company Number: HU-JNJFOC-20150212251

PATIENT
  Age: 57 Year
  Sex: Female
  Weight: 120 kg

DRUGS (1)
  1. STELARA [Suspect]
     Active Substance: USTEKINUMAB
     Indication: PSORIASIS
     Dosage: TOTAL DOSES: 16
     Route: 058
     Dates: start: 20130613

REACTIONS (2)
  - Lower respiratory tract inflammation [Fatal]
  - Pneumonia [Fatal]

NARRATIVE: CASE EVENT DATE: 20150119
